FAERS Safety Report 4340923-5 (Version None)
Quarter: 2004Q2

REPORT INFORMATION
  Report Type: 
  Country: None (occurrence: None)
  Receive Date: 20040413
  Receipt Date: 20040401
  Transmission Date: 20050107
  Serious: Yes (Hospitalization)
  Sender: FDA-Public Use
  Company Number: 2004207273FR

PATIENT
  Age: 78 Year
  Sex: Female

DRUGS (5)
  1. CLINDAMYCIN [Suspect]
     Indication: SEPSIS
     Dosage: IV
     Route: 042
     Dates: start: 20040127, end: 20040223
  2. RIFAMPICIN [Suspect]
     Indication: SEPSIS
     Dosage: IV
     Route: 042
     Dates: start: 20040115, end: 20040223
  3. OMEPRAZOLE [Suspect]
     Indication: STRESS ULCER
     Dosage: 40 7 120 MG, DAILY, IV
     Route: 042
     Dates: start: 20040211, end: 20040225
  4. CORDARONE [Concomitant]
  5. CALCIPARINE [Concomitant]

REACTIONS (8)
  - COMA [None]
  - CONVULSION [None]
  - CSF CELL COUNT ABNORMAL [None]
  - CSF LYMPHOCYTE COUNT INCREASED [None]
  - CSF PROTEIN DECREASED [None]
  - GASTRIC HAEMORRHAGE [None]
  - STATUS EPILEPTICUS [None]
  - SYNCOPE [None]
